FAERS Safety Report 16659390 (Version 2)
Quarter: 2019Q4

REPORT INFORMATION
  Report Type: Report from Study
  Country: US (occurrence: US)
  Receive Date: 20190802
  Receipt Date: 20191212
  Transmission Date: 20200122
  Serious: No
  Sender: FDA-Public Use
  Company Number: PHEH2019US031643

PATIENT
  Age: 60 Year
  Sex: Male

DRUGS (1)
  1. COSENTYX [Suspect]
     Active Substance: SECUKINUMAB
     Indication: PSORIATIC ARTHROPATHY
     Dosage: UNK
     Route: 065

REACTIONS (9)
  - Gastrointestinal disorder [Recovered/Resolved]
  - Muscle tightness [Unknown]
  - Abdominal discomfort [Recovered/Resolved]
  - Parosmia [Unknown]
  - Arthralgia [Unknown]
  - Gastrointestinal pain [Recovered/Resolved]
  - Diarrhoea [Unknown]
  - Rhinorrhoea [Unknown]
  - Pain in extremity [Not Recovered/Not Resolved]
